FAERS Safety Report 5971236-3 (Version None)
Quarter: 2008Q4

REPORT INFORMATION
  Report Type: 
  Country: None (occurrence: None)
  Receive Date: 20081128
  Receipt Date: 20081121
  Transmission Date: 20090506
  Serious: Yes (Other)
  Sender: FDA-Public Use
  Company Number: CH-PFIZER INC-2008004182

PATIENT
  Age: 29 Year
  Sex: Female

DRUGS (1)
  1. CYTOTEC [Suspect]
     Indication: ABORTION INDUCED
     Route: 048
     Dates: start: 20071211, end: 20071211

REACTIONS (2)
  - ABORTION INDUCED [None]
  - OFF LABEL USE [None]
